FAERS Safety Report 16822001 (Version 1)
Quarter: 2019Q3

REPORT INFORMATION
  Report Type: Spontaneous
  Country: US (occurrence: US)
  Receive Date: 20190918
  Receipt Date: 20190918
  Transmission Date: 20191005
  Serious: Yes (Other)
  Sender: FDA-Public Use
  Company Number: None

PATIENT
  Age: 81 Year
  Sex: Male
  Weight: 72 kg

DRUGS (1)
  1. HEPARIN [Suspect]
     Active Substance: HEPARIN SODIUM
     Indication: CATHETERISATION CARDIAC
     Dates: start: 20190917, end: 20190917

REACTIONS (4)
  - Procedural complication [None]
  - Suspected product quality issue [None]
  - Therapeutic response decreased [None]
  - Thrombosis [None]

NARRATIVE: CASE EVENT DATE: 20190917
